FAERS Safety Report 14083038 (Version 5)
Quarter: 2018Q2

REPORT INFORMATION
  Report Type: Spontaneous
  Country: JP (occurrence: JP)
  Receive Date: 20171013
  Receipt Date: 20180525
  Transmission Date: 20180711
  Serious: Yes (Hospitalization, Other)
  Sender: FDA-Public Use
  Company Number: JP-AMGEN-JPNSP2017153747

PATIENT
  Age: 70 Year
  Sex: Male

DRUGS (25)
  1. KIKLIN [Concomitant]
     Active Substance: BIXALOMER
     Dosage: UNK
  2. ATORVASTATIN [Concomitant]
     Active Substance: ATORVASTATIN
     Dosage: UNK
  3. MARZULENE ES [Concomitant]
     Dosage: UNK
  4. LEVOCARNITINE CHLORIDE [Concomitant]
     Active Substance: LEVOCARNITINE HYDROCHLORIDE
     Dosage: UNK
  5. FESIN [Concomitant]
     Active Substance: IRON SUCROSE
     Dosage: UNK
  6. MYOCOR [Concomitant]
     Active Substance: NITROGLYCERIN
     Dosage: UNK
     Dates: start: 20171006
  7. TAKECAB [Concomitant]
     Active Substance: VONOPRAZAN FUMURATE
     Dosage: UNK
  8. HEPARIN [Concomitant]
     Active Substance: HEPARIN SODIUM
     Dosage: UNK
  9. EPOGIN [Concomitant]
     Active Substance: ERYTHROPOIETIN
     Dosage: UNK
  10. COMPLAVIN [Concomitant]
     Active Substance: ASPIRIN\CLOPIDOGREL BISULFATE
     Dosage: UNK
  11. NICORANDIL [Concomitant]
     Active Substance: NICORANDIL
     Dosage: UNK
  12. OLMETEC [Concomitant]
     Active Substance: OLMESARTAN MEDOXOMIL
     Dosage: 20 MG, QD
     Dates: end: 20171006
  13. NOVORAPID [Concomitant]
     Active Substance: INSULIN ASPART
     Dosage: UNK
  14. BONALON [Concomitant]
     Active Substance: ALENDRONATE SODIUM
     Dosage: 35 MG, UNK
  15. BERAPROST NA [Concomitant]
     Active Substance: BERAPROST SODIUM
     Dosage: UNK
  16. LEVEMIR [Concomitant]
     Active Substance: INSULIN DETEMIR
     Dosage: UNK
  17. ROCALTROL [Concomitant]
     Active Substance: CALCITRIOL
     Dosage: UNK
  18. SENNOSIDE [Concomitant]
     Active Substance: SENNOSIDES
     Dosage: UNK
  19. PARSABIV [Suspect]
     Active Substance: ETELCALCETIDE HYDROCHLORIDE
     Indication: HYPERPARATHYROIDISM SECONDARY
     Dosage: 5 MG, 3 TIMES/WK
     Route: 042
     Dates: start: 20170814
  20. VISIPAQUE [Suspect]
     Active Substance: IODIXANOL
     Indication: PRODUCT USED FOR UNKNOWN INDICATION
     Dosage: UNK
     Route: 042
     Dates: start: 20171017
  21. FOSRENOL [Concomitant]
     Active Substance: LANTHANUM CARBONATE
     Dosage: UNK
  22. OLMETEC [Concomitant]
     Active Substance: OLMESARTAN MEDOXOMIL
     Dosage: UNK
     Dates: start: 20171007
  23. VITAMEDIN [Concomitant]
     Active Substance: CYANOCOBALAMIN\PYRIDOXINE HYDROCHLORIDE\THIAMINE
     Dosage: UNK
  24. ALYPROST [Concomitant]
     Dosage: UNK
  25. AMLODIPINE [Concomitant]
     Active Substance: AMLODIPINE BESYLATE
     Dosage: UNK, QD, 2.5 MG TO 5 MG
     Dates: start: 20171011

REACTIONS (4)
  - Pneumonia [Recovered/Resolved]
  - Peripheral arterial occlusive disease [Recovered/Resolved]
  - Cardiac failure acute [Recovered/Resolved]
  - Blister [Recovered/Resolved]

NARRATIVE: CASE EVENT DATE: 20170906
